FAERS Safety Report 6212333-7 (Version None)
Quarter: 2009Q2

REPORT INFORMATION
  Report Type: 
  Country: None (occurrence: None)
  Receive Date: 20090529
  Receipt Date: 20090514
  Transmission Date: 20091009
  Serious: Yes (Hospitalization)
  Sender: FDA-Public Use
  Company Number: 2009001476

PATIENT
  Age: 45 Year
  Sex: Female

DRUGS (5)
  1. ERLOTINIB (ERLOTINIB) (TABLET) (ERLOTINIB) [Suspect]
     Indication: NON-SMALL CELL LUNG CANCER
     Dosage: 150 MG, QD, ORAL
     Route: 048
     Dates: start: 20060413, end: 20070302
  2. IPRATROPIUM BROMIDE [Concomitant]
  3. BUDESONIDE [Concomitant]
  4. DEXAMETHASONE TAB [Concomitant]
  5. BACTRIM [Concomitant]

REACTIONS (1)
  - GAIT DISTURBANCE [None]
